FAERS Safety Report 16997984 (Version 2)
Quarter: 2019Q4

REPORT INFORMATION
  Report Type: Spontaneous
  Country: US (occurrence: US)
  Receive Date: 20191106
  Receipt Date: 20191127
  Transmission Date: 20200122
  Serious: No
  Sender: FDA-Public Use
  Company Number: US-JNJFOC-20191047088

PATIENT
  Sex: Female
  Weight: 73.55 kg

DRUGS (1)
  1. WOMENS ROGAINE [Suspect]
     Active Substance: MINOXIDIL
     Indication: ALOPECIA
     Dosage: 1 ML AS DIRECTED , TWICE A DAY
     Route: 061
     Dates: start: 20170218, end: 20191104

REACTIONS (2)
  - Alopecia [Unknown]
  - Therapeutic product effect decreased [Unknown]
